FAERS Safety Report 7074735-9 (Version None)
Quarter: 2010Q4

REPORT INFORMATION
  Report Type: 
  Country: None (occurrence: None)
  Receive Date: 20101029
  Receipt Date: 20101025
  Transmission Date: 20110411
  Serious: Yes (Other)
  Sender: FDA-Public Use
  Company Number: US-RB-014094-10

PATIENT
  Age: 37 Year
  Sex: Male

DRUGS (2)
  1. SUBOXONE TABLET [Suspect]
     Indication: DRUG DEPENDENCE
     Dosage: 16-28 MF DAILY
     Route: 060
     Dates: start: 20070101, end: 20100518
  2. SUBOXONE TABLET [Suspect]
     Route: 060
     Dates: start: 20100701

REACTIONS (11)
  - ASTHENIA [None]
  - DECREASED APPETITE [None]
  - DEPRESSION [None]
  - FATIGUE [None]
  - FORMICATION [None]
  - INSOMNIA [None]
  - MALAISE [None]
  - OVERDOSE [None]
  - RESTLESSNESS [None]
  - SUICIDAL IDEATION [None]
  - TOOTH DISORDER [None]
